APPROVED DRUG PRODUCT: PURIXAN
Active Ingredient: MERCAPTOPURINE
Strength: 20MG/ML
Dosage Form/Route: SUSPENSION;ORAL
Application: N205919 | Product #001 | TE Code: AB
Applicant: NOVA LABORATORIES LTD
Approved: Apr 28, 2014 | RLD: Yes | RS: Yes | Type: RX